FAERS Safety Report 23129411 (Version 1)
Quarter: 2023Q4

REPORT INFORMATION
  Report Type: Report from Study
  Country: CO (occurrence: None)
  Receive Date: 20231031
  Receipt Date: 20231031
  Transmission Date: 20240110
  Serious: Yes (Hospitalization)
  Sender: FDA-Public Use
  Company Number: 2023A243349

PATIENT
  Age: 26497 Day
  Sex: Male

DRUGS (1)
  1. TAGRISSO [Suspect]
     Active Substance: OSIMERTINIB
     Indication: Lung neoplasm malignant
     Route: 048
     Dates: start: 20231007

REACTIONS (2)
  - Sepsis [Recovering/Resolving]
  - Immune system disorder [Recovering/Resolving]

NARRATIVE: CASE EVENT DATE: 20231018
